FAERS Safety Report 9560102 (Version 2)
Quarter: 2013Q4

REPORT INFORMATION
  Report Type: Spontaneous
  Country: US (occurrence: US)
  Receive Date: 20130927
  Receipt Date: 20131202
  Transmission Date: 20140711
  Serious: No
  Sender: FDA-Public Use
  Company Number: US-PFIZER INC-2013277129

PATIENT
  Age: 63 Year
  Sex: Female
  Weight: 136 kg

DRUGS (3)
  1. LYRICA [Suspect]
     Indication: FIBROMYALGIA
     Dosage: 75 MG, 2X/DAY
     Route: 048
     Dates: start: 2013
  2. PERCOCET [Concomitant]
     Indication: ARTHRITIS
     Dosage: OXYCODONE (7.5MG)/ PARACETAMOL (325MG), 4X/DAY
  3. METFORMIN [Concomitant]
     Indication: DIABETES MELLITUS
     Dosage: 500 MG, 1X/DAY

REACTIONS (2)
  - Drug ineffective [Unknown]
  - Pain [Unknown]
